FAERS Safety Report 6725130-0 (Version None)
Quarter: 2010Q2

REPORT INFORMATION
  Report Type: 
  Country: None (occurrence: None)
  Receive Date: 20100514
  Receipt Date: 20100505
  Transmission Date: 20101027
  Serious: Yes (Other)
  Sender: FDA-Public Use
  Company Number: US-BAYER-201021760NA

PATIENT
  Age: 85 Year
  Sex: Female

DRUGS (2)
  1. MAGNEVIST [Suspect]
     Indication: NUCLEAR MAGNETIC RESONANCE IMAGING ABDOMINAL
     Dosage: TOTAL DAILY DOSE: 20 ML  UNIT DOSE: 50 ML
     Route: 042
     Dates: start: 20100429, end: 20100429
  2. VALIUM [Concomitant]
     Indication: CLAUSTROPHOBIA

REACTIONS (5)
  - BURNING SENSATION [None]
  - DYSPHAGIA [None]
  - GINGIVAL DISORDER [None]
  - TONGUE DISORDER [None]
  - URTICARIA [None]
